FAERS Safety Report 21789792 (Version 3)
Quarter: 2023Q1

REPORT INFORMATION
  Report Type: Spontaneous
  Country: US (occurrence: US)
  Receive Date: 20221228
  Receipt Date: 20230213
  Transmission Date: 20230418
  Serious: Yes (Disabling)
  Sender: FDA-Public Use
  Company Number: US-PFIZER INC-202201391885

PATIENT
  Age: 26 Year
  Sex: Male
  Weight: 108.86 kg

DRUGS (2)
  1. PAXLOVID [Suspect]
     Active Substance: NIRMATRELVIR\RITONAVIR
     Indication: COVID-19 treatment
     Dosage: 3 DF, 2X/DAY(TWICE A DAY FOR FIVE DAYS)
     Route: 048
     Dates: start: 20221219
  2. KEPPRA [Concomitant]
     Active Substance: LEVETIRACETAM
     Indication: Seizure
     Dosage: 1500 MG, 2X/DAY

REACTIONS (3)
  - Vomiting projectile [Unknown]
  - Myalgia [Not Recovered/Not Resolved]
  - Taste disorder [Recovering/Resolving]

NARRATIVE: CASE EVENT DATE: 20221219
